FAERS Safety Report 9835767 (Version 1)
Quarter: 2014Q1

REPORT INFORMATION
  Report Type: Spontaneous
  Country: US (occurrence: US)
  Receive Date: 20140122
  Receipt Date: 20140122
  Transmission Date: 20141002
  Serious: Yes (Death)
  Sender: FDA-Public Use
  Company Number: US-BAYER-2014-009587

PATIENT
  Sex: Male

DRUGS (2)
  1. ALKA-SELTZER ORIGINAL [Suspect]
     Indication: DIARRHOEA
     Dosage: 2 DF, PRN
     Dates: end: 1969
  2. ALKA-SELTZER ORIGINAL [Suspect]
     Indication: NASOPHARYNGITIS

REACTIONS (2)
  - Death [Fatal]
  - Off label use [None]
